FAERS Safety Report 7270539 (Version 3)
Quarter: 2017Q3

REPORT INFORMATION
  Report Type: Report from Study
  Country: DE (occurrence: DE)
  Receive Date: 20100204
  Receipt Date: 20170825
  Transmission Date: 20171128
  Serious: Yes (Death, Life-Threatening, Hospitalization)
  Sender: FDA-Public Use
  Company Number: PHHO2010DE00521

PATIENT
  Age: 65 Year
  Sex: Male

DRUGS (4)
  1. CYCLOSPORINE. [Suspect]
     Active Substance: CYCLOSPORINE
     Indication: RENAL TRANSPLANT
     Dosage: 300 MG, UNK
     Route: 048
     Dates: start: 20090630
  2. PREDNISONE. [Suspect]
     Active Substance: PREDNISONE
     Indication: RENAL TRANSPLANT
     Dosage: 7.5 MG, UNK
     Route: 048
  3. NO TREATMENT RECEIVED [Suspect]
     Active Substance: UNSPECIFIED INGREDIENT
     Indication: RENAL TRANSPLANT
     Dosage: NO TREATMENT
     Route: 065
  4. MYFORTIC [Suspect]
     Active Substance: MYCOPHENOLATE SODIUM
     Indication: RENAL TRANSPLANT
     Dosage: 540 MG, UNK
     Route: 048
     Dates: start: 20090630

REACTIONS (7)
  - Bronchial carcinoma [Fatal]
  - Tumour lysis syndrome [Fatal]
  - Candida infection [Not Recovered/Not Resolved]
  - Multiple organ dysfunction syndrome [Fatal]
  - Oedema peripheral [Not Recovered/Not Resolved]
  - Metastases to liver [Not Recovered/Not Resolved]
  - Restlessness [Not Recovered/Not Resolved]

NARRATIVE: CASE EVENT DATE: 20100104
